FAERS Safety Report 8637035 (Version 6)
Quarter: 2012Q4

REPORT INFORMATION
  Report Type: 
  Country: US (occurrence: US)
  Receive Date: 20120626
  Receipt Date: 20121102
  Transmission Date: 20130627
  Serious: Yes (Other)
  Sender: FDA-Public Use
  Company Number: US-PFIZER INC-2012150934

PATIENT
  Age: 38 Year
  Sex: Female
  Weight: 113.38 kg

DRUGS (16)
  1. LYRICA [Suspect]
     Indication: FIBROMYALGIA
     Dosage: 300 mg, 3x/day
     Route: 048
     Dates: start: 20120702
  2. LYRICA [Suspect]
     Dosage: 300 mg, 2x/day
     Route: 048
     Dates: end: 20120702
  3. LYRICA [Suspect]
     Dosage: 300 mg, 2x/day
     Route: 048
     Dates: start: 2008
  4. LYRICA [Suspect]
     Dosage: 300 mg, 2x/day
     Route: 048
  5. DECADRON [Suspect]
     Indication: INFLAMMATION
     Dosage: injection once
     Dates: start: 20120620, end: 20120620
  6. DECADRON [Suspect]
     Indication: INFLAMMATION
     Dosage: UNK
     Route: 048
     Dates: start: 20120620
  7. ACETAMINOPHEN\CODEINE PHOSPHATE [Suspect]
     Indication: FIBROMYALGIA
     Dosage: 300/30 mg, 2x/day
  8. ACETAMINOPHEN\CODEINE PHOSPHATE [Suspect]
     Dosage: UNK
  9. CYMBALTA [Concomitant]
     Indication: DEPRESSION
     Dosage: 50 mg, 2x/day
  10. CYMBALTA [Concomitant]
     Dosage: UNK
  11. XANAX [Concomitant]
     Indication: ANXIETY
     Dosage: 1 mg, 2x/day
  12. XANAX [Concomitant]
     Dosage: UNK
  13. TRAZODONE [Concomitant]
     Dosage: 200 mg, daily
  14. TRAZODONE [Concomitant]
     Dosage: UNK
  15. MULTIVITAMINS [Concomitant]
     Dosage: daily
  16. BACLOFEN [Concomitant]
     Dosage: UNK

REACTIONS (24)
  - Drug hypersensitivity [Unknown]
  - Pain [Unknown]
  - Migraine [Unknown]
  - Inflammation [Recovered/Resolved]
  - Vitamin B12 decreased [Unknown]
  - Serum ferritin decreased [Unknown]
  - Blood iron decreased [Unknown]
  - Back pain [Not Recovered/Not Resolved]
  - Skin exfoliation [Unknown]
  - Pain in extremity [Unknown]
  - Overdose [Unknown]
  - Feeling abnormal [Not Recovered/Not Resolved]
  - Pain of skin [Unknown]
  - Anxiety [Unknown]
  - Insomnia [Unknown]
  - Incorrect dose administered [Unknown]
  - Gait disturbance [Recovered/Resolved]
  - Rash [Recovered/Resolved]
  - Activities of daily living impaired [Unknown]
  - Hallucination, auditory [Unknown]
  - Drug ineffective [Unknown]
  - Burning sensation [Recovered/Resolved]
  - Pain [Recovered/Resolved]
  - Paraesthesia [Recovered/Resolved]
